FAERS Safety Report 4475812-9 (Version None)
Quarter: 2004Q4

REPORT INFORMATION
  Report Type: 
  Country: None (occurrence: None)
  Receive Date: 20041015
  Receipt Date: 20040906
  Transmission Date: 20050328
  Serious: Yes (Hospitalization)
  Sender: FDA-Public Use
  Company Number: DE-GLAXOSMITHKLINE-D0044619A

PATIENT
  Age: 79 Year
  Sex: Male

DRUGS (6)
  1. QUILONUM RETARD [Suspect]
     Dosage: 1.5TAB PER DAY
     Route: 065
     Dates: start: 19800101
  2. BISOMERCK [Concomitant]
     Dosage: 5MG TWICE PER DAY
     Route: 065
  3. THYROXIN [Concomitant]
     Dosage: 100MG PER DAY
     Route: 065
  4. LANSOPRAZOLE [Concomitant]
     Dosage: 15MG PER DAY
     Route: 065
  5. CORANGIN [Concomitant]
     Dosage: 40MG PER DAY
     Route: 065
  6. MARCUMAR [Concomitant]
     Route: 065

REACTIONS (1)
  - MUSCULAR WEAKNESS [None]
